FAERS Safety Report 4624000-1 (Version None)
Quarter: 2005Q1

REPORT INFORMATION
  Report Type: 
  Country: None (occurrence: None)
  Receive Date: 20050331
  Receipt Date: 20050322
  Transmission Date: 20050727
  Serious: Yes (Hospitalization)
  Sender: FDA-Public Use
  Company Number: DE-JNJFOC-20050305561

PATIENT
  Sex: Male

DRUGS (2)
  1. SEMPERA 7 [Suspect]
     Route: 049
     Dates: start: 20040810, end: 20040826
  2. ADALAT [Concomitant]

REACTIONS (4)
  - HYPOKALAEMIA [None]
  - LEFT VENTRICULAR FAILURE [None]
  - PLEURAL EFFUSION [None]
  - PNEUMONIA [None]
